FAERS Safety Report 7964728-9 (Version None)
Quarter: 2011Q4

REPORT INFORMATION
  Report Type: 
  Country: None (occurrence: None)
  Receive Date: 20111208
  Receipt Date: 20111128
  Transmission Date: 20120403
  Serious: Yes (Life-Threatening, Other)
  Sender: FDA-Public Use
  Company Number: US-ELI_LILLY_AND_COMPANY-US201111008631

PATIENT
  Sex: Female

DRUGS (1)
  1. ZYPREXA [Suspect]

REACTIONS (1)
  - POISONING DELIBERATE [None]
